FAERS Safety Report 5422553-7 (Version None)
Quarter: 2007Q3

REPORT INFORMATION
  Report Type: 
  Country: None (occurrence: None)
  Receive Date: 20070822
  Receipt Date: 20070816
  Transmission Date: 20080115
  Serious: Yes (Death, Hospitalization, Other)
  Sender: FDA-Public Use
  Company Number: JP-ELI_LILLY_AND_COMPANY-JP200708004278

PATIENT
  Age: 67 Year
  Sex: Female
  Weight: 45 kg

DRUGS (2)
  1. GEMCITABINE HCL [Suspect]
     Indication: PANCREATIC CARCINOMA STAGE IV
     Dosage: 1000 MG/M2, OTHER
     Route: 042
     Dates: start: 20060821
  2. GEMCITABINE HCL [Suspect]
     Dosage: 1000 MG/M2, OTHER
     Route: 042
     Dates: start: 20061124

REACTIONS (4)
  - GASTROINTESTINAL PERFORATION [None]
  - MALIGNANT ASCITES [None]
  - MALIGNANT NEOPLASM PROGRESSION [None]
  - SUBILEUS [None]
